FAERS Safety Report 8409076 (Version 2)
Quarter: 2013Q2

REPORT INFORMATION
  Report Type: Spontaneous
  Country: US (occurrence: None)
  Receive Date: 20111227
  Receipt Date: 20120703
  Transmission Date: 20140414
  Serious: Yes (Other)
  Sender: FDA-Public Use
  Company Number: PHEH2011US06039

PATIENT
  Age: 55 Year
  Sex: Female
  Weight: 96.6 kg

DRUGS (1)
  1. GILENYA [Suspect]
     Indication: MULTIPLE SCLEROSIS
     Dosage: 0.5 MG, QD, ORAL
     Route: 048
     Dates: start: 20110926

REACTIONS (8)
  - FATIGUE [None]
  - Nystagmus [None]
  - VISION BLURRED [None]
  - HEADACHE [None]
  - MENTAL IMPAIRMENT [None]
  - MEMORY IMPAIRMENT [None]
  - Fall [None]
  - Feeling abnormal [None]
